FAERS Safety Report 8941409 (Version 1)
Quarter: 2012Q4

REPORT INFORMATION
  Report Type: 
  Country: US (occurrence: US)
  Receive Date: 20121203
  Receipt Date: 20121203
  Transmission Date: 20130627
  Serious: No
  Sender: FDA-Public Use
  Company Number: US-PFIZER INC-2012302053

PATIENT
  Age: 80 Year
  Sex: Female
  Weight: 72.56 kg

DRUGS (4)
  1. LYRICA [Suspect]
     Indication: PAIN IN HIP
     Dosage: UNK, 1x/day
     Route: 048
     Dates: start: 20121120, end: 201211
  2. LYRICA [Suspect]
     Indication: PAIN IN LEG
     Dosage: UNK, 2x/day
     Route: 048
     Dates: start: 201211
  3. LEVEMIR [Concomitant]
     Indication: INSULIN-DEPENDENT DIABETES MELLITUS
     Dosage: UNK, 2x/day
  4. AVELOX [Concomitant]
     Dosage: UNK

REACTIONS (2)
  - Somnolence [Unknown]
  - Muscular weakness [Unknown]
